FAERS Safety Report 24761027 (Version 3)
Quarter: 2025Q4

REPORT INFORMATION
  Report Type: Report from Study
  Country: US (occurrence: None)
  Receive Date: 20241220
  Receipt Date: 20251211
  Transmission Date: 20260117
  Serious: Yes (Hospitalization, Other)
  Sender: UCB
  Company Number: US-UCBSA-2024066134

PATIENT
  Age: 66 Year

DRUGS (1)
  1. ROTIGOTINE [Suspect]
     Active Substance: ROTIGOTINE
     Indication: Restless legs syndrome
     Dosage: 3 MILLIGRAM, ONCE DAILY (QD)

REACTIONS (7)
  - Fall [Unknown]
  - Wrist surgery [Unknown]
  - Neuropathy peripheral [Unknown]
  - Fracture [Unknown]
  - Joint injury [Unknown]
  - Product adhesion issue [Unknown]
  - Wrong technique in product usage process [Unknown]
